FAERS Safety Report 19711575 (Version 1)
Quarter: 2021Q3

REPORT INFORMATION
  Report Type: Spontaneous
  Country: US (occurrence: US)
  Receive Date: 20210817
  Receipt Date: 20210817
  Transmission Date: 20211014
  Serious: No
  Sender: FDA-Public Use
  Company Number: US-SOMERSET-2021-US-000262

PATIENT
  Age: 75 Year
  Sex: Male

DRUGS (1)
  1. CISATRACURIUM BESYLATE INJ USP, SONGLE?DOSE VIALS [Suspect]
     Active Substance: CISATRACURIUM BESYLATE
     Route: 042
     Dates: start: 20210602, end: 20210602

REACTIONS (3)
  - Anxiety [Recovered/Resolved]
  - Drug ineffective [Recovered/Resolved]
  - Wheezing [Recovered/Resolved]

NARRATIVE: CASE EVENT DATE: 20210602
